FAERS Safety Report 10206809 (Version 2)
Quarter: 2014Q2

REPORT INFORMATION
  Report Type: Spontaneous
  Country: MA (occurrence: MA)
  Receive Date: 20140530
  Receipt Date: 20140611
  Transmission Date: 20141212
  Serious: Yes (Life-Threatening, Hospitalization, Other)
  Sender: FDA-Public Use
  Company Number: MA-ROCHE-1408838

PATIENT
  Age: 67 Year
  Sex: Female

DRUGS (5)
  1. MABTHERA [Suspect]
     Indication: B-CELL LYMPHOMA
     Dosage: PERFUSION
     Route: 042
     Dates: start: 201404
  2. CYCLOPHOSPHAMIDE [Concomitant]
  3. DOXORUBICIN [Concomitant]
  4. PREDNISONE [Concomitant]
  5. VINCRISTINE [Concomitant]

REACTIONS (6)
  - Anaphylactic shock [Recovered/Resolved]
  - Sciatica [Recovered/Resolved]
  - Cranial nerve paralysis [Not Recovered/Not Resolved]
  - Pain [Not Recovered/Not Resolved]
  - Polyneuropathy [Not Recovered/Not Resolved]
  - Superinfection [Unknown]
